FAERS Safety Report 4982479-X (Version None)
Quarter: 2006Q2

REPORT INFORMATION
  Report Type: 
  Country: None (occurrence: None)
  Receive Date: 20060421
  Receipt Date: 20060413
  Transmission Date: 20061013
  Serious: Yes (Hospitalization, Other)
  Sender: FDA-Public Use
  Company Number: 2006050884

PATIENT
  Age: 68 Year
  Sex: Female

DRUGS (5)
  1. ZYRTEC [Suspect]
     Indication: HYPERSENSITIVITY
     Dosage: (1 IN 1 D), ORAL
     Route: 048
     Dates: end: 20060122
  2. STOOL SOFTENER (DOCUSATE SODIUM) [Suspect]
     Indication: FAECES HARD
     Dosage: (DAILY)
     Dates: start: 20060101
  3. LOTREL [Concomitant]
  4. ZETIA [Concomitant]
  5. ALL OTHER THERAPEUTIC PRODUCTS (ALL OTHER THERAPEUTIC PRODUCTS [Concomitant]

REACTIONS (10)
  - ABDOMINAL PAIN UPPER [None]
  - APPENDICITIS PERFORATED [None]
  - BACK PAIN [None]
  - COLECTOMY [None]
  - ECONOMIC PROBLEM [None]
  - GASTROINTESTINAL GANGRENE [None]
  - MALAISE [None]
  - MUSCLE SPASMS [None]
  - POST PROCEDURAL COMPLICATION [None]
  - WEIGHT DECREASED [None]
